FAERS Safety Report 5563296-9 (Version None)
Quarter: 2007Q4

REPORT INFORMATION
  Report Type: 
  Country: None (occurrence: None)
  Receive Date: 20071217
  Receipt Date: 20071203
  Transmission Date: 20080405
  Serious: Yes (Hospitalization)
  Sender: FDA-Public Use
  Company Number: ES-ROCHE-536115

PATIENT
  Age: 68 Year
  Sex: Male

DRUGS (3)
  1. TORSEMIDE [Suspect]
     Indication: DRUG USE FOR UNKNOWN INDICATION
     Dosage: DOSE REGIMEN REPORTED AS 10MG PER 24 HOUR.
     Route: 048
     Dates: start: 20060101, end: 20061026
  2. ATACAND [Suspect]
     Indication: DRUG USE FOR UNKNOWN INDICATION
     Dosage: DOSE REGIMEN REPORTED AS 10MG PER 24 HOUR.
     Route: 048
     Dates: start: 20060101, end: 20061026
  3. NORVASC [Suspect]
     Indication: DRUG USE FOR UNKNOWN INDICATION
     Dosage: DOSE REGIMEN REPORTED AS 10MG PER 24 HOUR.
     Route: 048
     Dates: start: 20060101, end: 20061031

REACTIONS (1)
  - RENAL FAILURE CHRONIC [None]
